FAERS Safety Report 11794737 (Version 2)
Quarter: 2016Q2

REPORT INFORMATION
  Report Type: Report from Study
  Country: US (occurrence: US)
  Receive Date: 20151202
  Receipt Date: 20160504
  Transmission Date: 20160815
  Serious: Yes (Hospitalization, Other)
  Sender: FDA-Public Use
  Company Number: US-MDT-ADR-2015-02267

PATIENT
  Age: 53 Year
  Sex: Male

DRUGS (2)
  1. LIORESAL [Suspect]
     Active Substance: BACLOFEN
     Dosage: 13.1 MCG/DAY (MINIMUM RATE)
  2. COMPOUNDED BACLOFEN [Suspect]
     Active Substance: BACLOFEN
     Dosage: 200 MCG/DAY

REACTIONS (5)
  - Pyrexia [Unknown]
  - Post procedural infection [Unknown]
  - Medical device site swelling [Unknown]
  - Medical device site erythema [Unknown]
  - Medical device site infection [Unknown]
